FAERS Safety Report 11302686 (Version 1)
Quarter: 2015Q3

REPORT INFORMATION
  Report Type: Spontaneous
  Country: US (occurrence: None)
  Receive Date: 20150723
  Receipt Date: 20150723
  Transmission Date: 20151125
  Serious: Yes (Life-Threatening, Other)
  Sender: FDA-Public Use
  Company Number: None

PATIENT
  Age: 61 Year
  Sex: Male
  Weight: 115.67 kg

DRUGS (3)
  1. LOSARTAN-HCTZ [Suspect]
     Active Substance: HYDROCHLOROTHIAZIDE\LOSARTAN
     Indication: HYPERTENSION
     Route: 048
  2. CHOLESTEROL PILLS [Concomitant]
  3. VITAMIN D [Concomitant]
     Active Substance: CHOLECALCIFEROL

REACTIONS (9)
  - Peripheral swelling [None]
  - Eye swelling [None]
  - Testicular swelling [None]
  - Rash [None]
  - Pain [None]
  - Fatigue [None]
  - Arthralgia [None]
  - Abdominal distension [None]
  - Swelling face [None]

NARRATIVE: CASE EVENT DATE: 20150722
